FAERS Safety Report 13668922 (Version 1)
Quarter: 2017Q2

REPORT INFORMATION
  Report Type: Spontaneous
  Country: FR (occurrence: FR)
  Receive Date: 20170620
  Receipt Date: 20170620
  Transmission Date: 20170830
  Serious: Yes (Hospitalization, Other)
  Sender: FDA-Public Use
  Company Number: FR-GLAXOSMITHKLINE-B0683753A

PATIENT
  Age: 20 Year
  Sex: Female

DRUGS (2)
  1. DEPAKINE CHRONO [Suspect]
     Active Substance: VALPROATE SODIUM
     Indication: EPILEPSY
     Route: 048
     Dates: start: 2004, end: 201010
  2. LAMICTAL [Suspect]
     Active Substance: LAMOTRIGINE
     Indication: EPILEPSY
     Route: 048
     Dates: start: 201009, end: 201010

REACTIONS (13)
  - Skin disorder [Recovering/Resolving]
  - Oral disorder [Recovered/Resolved]
  - Pyrexia [Recovered/Resolved]
  - Rash [Recovering/Resolving]
  - Toxic skin eruption [Recovering/Resolving]
  - Incorrect dose administered [Unknown]
  - Inflammation [Recovered/Resolved]
  - Rash erythematous [Recovering/Resolving]
  - Pigmentation disorder [Recovering/Resolving]
  - Dysphagia [Recovered/Resolved]
  - Stevens-Johnson syndrome [Recovered/Resolved]
  - Asthenia [Recovering/Resolving]
  - Dry eye [Recovering/Resolving]

NARRATIVE: CASE EVENT DATE: 201009
